FAERS Safety Report 18369974 (Version 1)
Quarter: 2020Q4

REPORT INFORMATION
  Report Type: Spontaneous
  Country: JP (occurrence: JP)
  Receive Date: 20201012
  Receipt Date: 20201012
  Transmission Date: 20210114
  Serious: Yes (Disabling)
  Sender: FDA-Public Use
  Company Number: JP-009507513-2010JPN000630J

PATIENT
  Age: 66 Year
  Sex: Male
  Weight: 82 kg

DRUGS (7)
  1. PROPOFOL. [Suspect]
     Active Substance: PROPOFOL
     Dosage: 120 MILLIGRAM
     Route: 065
     Dates: start: 20181016, end: 20181016
  2. BRIDION [Suspect]
     Active Substance: SUGAMMADEX
     Indication: NEUROMUSCULAR BLOCKADE REVERSAL
     Dosage: 200 MILLIGRAM
     Route: 042
     Dates: start: 20181016, end: 20181016
  3. SUPRANE [Suspect]
     Active Substance: DESFLURANE
     Dosage: 213.2 MILLILITER
     Route: 065
     Dates: start: 20181016, end: 20181016
  4. ULTIVA [Suspect]
     Active Substance: REMIFENTANIL HYDROCHLORIDE
     Dosage: 2.0 MILLIGRAM
     Route: 065
     Dates: start: 20181016, end: 20181016
  5. FLUMARIN [FLOMOXEF SODIUM] [Suspect]
     Active Substance: FLOMOXEF SODIUM
     Dosage: 1 GRAM
     Route: 065
     Dates: start: 20181016, end: 20181016
  6. FENTANYL. [Suspect]
     Active Substance: FENTANYL
     Dosage: 192.3 MICROGRAM
     Route: 065
     Dates: start: 20181016, end: 20181016
  7. ROCURONIUM BROMIDE. [Suspect]
     Active Substance: ROCURONIUM BROMIDE
     Dosage: 222.93 MILLIGRAM
     Route: 065
     Dates: start: 20181016, end: 20181016

REACTIONS (1)
  - Hypoxic-ischaemic encephalopathy [Not Recovered/Not Resolved]

NARRATIVE: CASE EVENT DATE: 20181016
